FAERS Safety Report 7820940-0 (Version None)
Quarter: 2011Q4

REPORT INFORMATION
  Report Type: 
  Country: None (occurrence: None)
  Receive Date: 20111018
  Receipt Date: 20111010
  Transmission Date: 20120403
  Serious: Yes (Hospitalization)
  Sender: FDA-Public Use
  Company Number: RO-GLAXOSMITHKLINE-B0756152A

PATIENT
  Sex: Female

DRUGS (1)
  1. CEFUROXIME [Suspect]
     Indication: BRONCHITIS
     Dosage: 500MG PER DAY
     Route: 048
     Dates: start: 20110817, end: 20110817

REACTIONS (2)
  - HYPOTENSION [None]
  - DERMATITIS ALLERGIC [None]
